FAERS Safety Report 6982050-4 (Version None)
Quarter: 2010Q3

REPORT INFORMATION
  Report Type: 
  Country: None (occurrence: None)
  Receive Date: 20100914
  Receipt Date: 20091208
  Transmission Date: 20110219
  Serious: No
  Sender: FDA-Public Use
  Company Number: US-PFIZER INC-2009291950

PATIENT
  Sex: Female
  Weight: 81.6 kg

DRUGS (10)
  1. LYRICA [Suspect]
     Indication: COMPLEX REGIONAL PAIN SYNDROME
     Dosage: 75 MG IN THE MORNING, 75 MG IN THE AFTERNOON AND 150 MG AT BEDTIME
     Route: 048
     Dates: start: 20090101, end: 20091001
  2. LYRICA [Suspect]
     Dosage: 75 MG, 2X/DAY
     Route: 048
     Dates: start: 20090201, end: 20090501
  3. LYRICA [Suspect]
     Dosage: 75 MG, 4X/DAY
     Dates: start: 20090501
  4. MULTI-VITAMINS [Concomitant]
     Dosage: UNK
  5. CALCIUM [Concomitant]
     Dosage: UNK
  6. CLONIDINE [Concomitant]
     Dosage: UNK
  7. MAXZIDE [Concomitant]
     Dosage: UNK
  8. LINSEED OIL [Concomitant]
     Dosage: UNK
  9. POTASSIUM CHLORIDE [Concomitant]
     Dosage: UNK
  10. ACETYLSALICYLIC ACID [Suspect]
     Dosage: 81 MG, UNK

REACTIONS (5)
  - BLOOD TRIGLYCERIDES INCREASED [None]
  - DRUG INEFFECTIVE FOR UNAPPROVED INDICATION [None]
  - HYPERTENSION [None]
  - OEDEMA PERIPHERAL [None]
  - WEIGHT INCREASED [None]
